FAERS Safety Report 12266573 (Version 6)
Quarter: 2016Q2

REPORT INFORMATION
  Report Type: Spontaneous
  Country: US (occurrence: US)
  Receive Date: 20160414
  Receipt Date: 20160610
  Transmission Date: 20160815
  Serious: Yes (Hospitalization)
  Sender: FDA-Public Use
  Company Number: US-HORIZON-BUP-RAV-0046-2016

PATIENT
  Age: 2 Year
  Sex: Female

DRUGS (3)
  1. BUPHENYL [Suspect]
     Active Substance: SODIUM PHENYLBUTYRATE
     Indication: ORNITHINE TRANSCARBAMOYLASE DEFICIENCY
     Dosage: 3 G DAILY
     Dates: start: 201305
  2. RAVICTI [Suspect]
     Active Substance: GLYCEROL PHENYLBUTYRATE
     Indication: ORNITHINE TRANSCARBAMOYLASE DEFICIENCY
     Dosage: 1.8 ML TID
     Dates: start: 20160113
  3. CITRULLINE [Concomitant]
     Active Substance: CITRULLINE
     Dosage: 2.2 G

REACTIONS (3)
  - Gastrointestinal tube insertion [Recovered/Resolved]
  - Gastroenteritis viral [Recovered/Resolved]
  - Hypophagia [Unknown]

NARRATIVE: CASE EVENT DATE: 20160223
